FAERS Safety Report 22997004 (Version 2)
Quarter: 2023Q4

REPORT INFORMATION
  Report Type: Report from Study
  Country: CN (occurrence: None)
  Receive Date: 20230928
  Receipt Date: 20231003
  Transmission Date: 20240110
  Serious: Yes (Hospitalization)
  Sender: FDA-Public Use
  Company Number: CN-ROCHE-3428378

PATIENT
  Age: 58 Year
  Sex: Female
  Weight: 62.5 kg

DRUGS (2)
  1. PERTUZUMAB\TRASTUZUMAB [Suspect]
     Active Substance: PERTUZUMAB\TRASTUZUMAB
     Indication: Breast cancer metastatic
     Dosage: 1200MG/600MG?DOSE LAST STUDY DRUG ADMIN PRIOR AE/SAE 600 MG/600 MG?START DATE OF MOST RECENT DOSE OF
     Route: 058
     Dates: start: 20230803
  2. DOCETAXEL [Suspect]
     Active Substance: DOCETAXEL
     Indication: Breast cancer metastatic
     Dosage: START DATE OF MOST RECENT DOSE OF STUDY DRUG PRIOR TO AE/SAE 18/SEP/2023? DOSE LAST STUDY DRUG ADMIN
     Route: 042
     Dates: start: 20230803

REACTIONS (2)
  - Nausea [Not Recovered/Not Resolved]
  - Neuralgia [Not Recovered/Not Resolved]

NARRATIVE: CASE EVENT DATE: 20230921
